FAERS Safety Report 22230999 (Version 1)
Quarter: 2023Q2

REPORT INFORMATION
  Report Type: Spontaneous
  Country: US (occurrence: None)
  Receive Date: 20230420
  Receipt Date: 20230420
  Transmission Date: 20230722
  Serious: No
  Sender: FDA-Public Use
  Company Number: US-ROCHE-3069030

PATIENT
  Age: 62 Year
  Sex: Female

DRUGS (6)
  1. KADCYLA [Suspect]
     Active Substance: ADO-TRASTUZUMAB EMTANSINE
     Indication: HER2 positive breast cancer
     Route: 042
     Dates: start: 20211022
  2. PERJETA [Suspect]
     Active Substance: PERTUZUMAB
     Indication: HER2 positive breast cancer
     Route: 042
     Dates: start: 20210326
  3. ARIMIDEX [Suspect]
     Active Substance: ANASTROZOLE
     Indication: HER2 positive breast cancer
     Route: 048
     Dates: start: 20220202, end: 20220329
  4. HERCEPTIN [Concomitant]
     Active Substance: TRASTUZUMAB
     Indication: HER2 positive breast cancer
     Route: 042
     Dates: start: 20210326
  5. TAXOTERE [Concomitant]
     Active Substance: DOCETAXEL
     Indication: HER2 positive breast cancer
     Route: 042
     Dates: start: 20210326, end: 20210709
  6. CARBOPLATIN [Concomitant]
     Active Substance: CARBOPLATIN
     Indication: HER2 positive breast cancer
     Route: 042
     Dates: start: 20210326

REACTIONS (15)
  - Fatigue [Unknown]
  - Nausea [Unknown]
  - White blood cell count decreased [Unknown]
  - Red blood cell count decreased [Unknown]
  - Diarrhoea [Unknown]
  - Rhinorrhoea [Unknown]
  - Lacrimation increased [Unknown]
  - Neuropathy peripheral [Unknown]
  - Weight decreased [Unknown]
  - Blood pressure decreased [Unknown]
  - Vision blurred [Unknown]
  - Dizziness [Unknown]
  - Decreased appetite [Unknown]
  - Chills [Unknown]
  - Bone pain [Unknown]

NARRATIVE: CASE EVENT DATE: 20210501
